FAERS Safety Report 5180079-2 (Version None)
Quarter: 2006Q4

REPORT INFORMATION
  Report Type: 
  Country: None (occurrence: None)
  Receive Date: 20061212
  Receipt Date: 20061129
  Transmission Date: 20070319
  Serious: Yes (Hospitalization, Other)
  Sender: FDA-Public Use
  Company Number: BR-2006-031260

PATIENT
  Age: 31 Year
  Sex: Female

DRUGS (4)
  1. BETAFERON [Suspect]
     Indication: RELAPSING-REMITTING MULTIPLE SCLEROSIS
     Dosage: 8 MIU, SUBCUTANEOUS
     Route: 058
     Dates: start: 20060116
  2. OMEPRAZOLE [Concomitant]
  3. TRYPTANOL [Concomitant]
  4. AMITRIPTYLINE HCL [Concomitant]

REACTIONS (7)
  - GASTRITIS [None]
  - HEMIPLEGIA [None]
  - INJECTION SITE BRUISING [None]
  - MENTAL DISORDER [None]
  - MULTIPLE SCLEROSIS RELAPSE [None]
  - RASH ERYTHEMATOUS [None]
  - SINUSITIS [None]
